FAERS Safety Report 7390037-5 (Version None)
Quarter: 2011Q2

REPORT INFORMATION
  Report Type: 
  Country: None (occurrence: None)
  Receive Date: 20110401
  Receipt Date: 20110325
  Transmission Date: 20111010
  Serious: Yes (Other)
  Sender: FDA-Public Use
  Company Number: PT-ASTRAZENECA-2011SE17195

PATIENT
  Age: 66 Year
  Sex: Female
  Weight: 75 kg

DRUGS (5)
  1. CRESTOR [Concomitant]
     Indication: HYPERCHOLESTEROLAEMIA
     Route: 048
  2. PROZAC [Concomitant]
     Indication: DEPRESSION
     Route: 048
  3. ANASTROZOL TEVA [Concomitant]
     Indication: BREAST CANCER
     Route: 048
     Dates: start: 20110214, end: 20110216
  4. ARIMIDEX [Suspect]
     Indication: BREAST CANCER
     Route: 048
     Dates: start: 20101101, end: 20110213
  5. ARIMIDEX [Suspect]
     Route: 048
     Dates: start: 20110216, end: 20110219

REACTIONS (2)
  - LIP OEDEMA [None]
  - TONGUE OEDEMA [None]
